FAERS Safety Report 10364446 (Version 10)
Quarter: 2015Q2

REPORT INFORMATION
  Report Type: Spontaneous
  Country: US (occurrence: None)
  Receive Date: 20140801
  Receipt Date: 20150623
  Transmission Date: 20150821
  Serious: Yes (Hospitalization, Other)
  Sender: FDA-Public Use
  Company Number: DSU-2014-101358

PATIENT
  Age: 62 Year
  Sex: Male

DRUGS (1)
  1. BENICAR [Suspect]
     Active Substance: OLMESARTAN MEDOXOMIL
     Indication: HYPERTENSION
     Route: 048
     Dates: end: 2013

REACTIONS (26)
  - Vomiting [None]
  - Malnutrition [None]
  - Haemorrhoids [None]
  - Dysphagia [None]
  - Hepatitis [None]
  - Rib fracture [None]
  - Malabsorption [None]
  - Gastrooesophageal reflux disease [None]
  - HLA marker study positive [None]
  - Hypertension [None]
  - Neoplasm malignant [None]
  - Sepsis [None]
  - Weight decreased [None]
  - Dehydration [None]
  - Intussusception [None]
  - Haemodilution [None]
  - Barrett^s oesophagus [None]
  - Nausea [None]
  - Haemoglobin decreased [None]
  - Pneumonia [None]
  - Diverticulum intestinal [None]
  - Colitis microscopic [None]
  - Enteritis [None]
  - Coeliac disease [None]
  - Depression [None]
  - Abnormal loss of weight [None]

NARRATIVE: CASE EVENT DATE: 201212
